FAERS Safety Report 9122073 (Version 1)
Quarter: 2013Q1

REPORT INFORMATION
  Report Type: Spontaneous
  Country: US (occurrence: None)
  Receive Date: 20130125
  Receipt Date: 20130125
  Transmission Date: 20140127
  Serious: No
  Sender: FDA-Public Use
  Company Number: 2012US-004416

PATIENT
  Age: 96 Year
  Sex: Female

DRUGS (14)
  1. OMONTYS [Suspect]
     Indication: NEPHROGENIC ANAEMIA
     Route: 058
     Dates: start: 20120911, end: 20120911
  2. CALCIUM CITRATE + D (CALCIUM CITRATE, COLECALCIFEROL) [Concomitant]
  3. CITALOPRAM (CITALOPRAM) [Concomitant]
  4. FISH OIL (FISH OIL) [Concomitant]
  5. HEPARIN (HEPARIN) [Concomitant]
  6. LEVAQUIN (LEVOFLOXACIN) [Concomitant]
  7. LEVOTHROID (LEVOTHYROXINE SODIUM) [Concomitant]
  8. LIPITOR (ATORVASTATIN CALCIUM) [Concomitant]
  9. LYRICA (PREGABALIN) [Concomitant]
  10. PANTOPRAZOLE SODIUM (PANTOPRAZOLE SODIUM SESQUIHYDRATE) [Concomitant]
  11. PHOSLO (CALCIUM ACETATE) [Concomitant]
  12. VENOFER [Concomitant]
  13. VITAMIN B COMPLEX (VITAMIN B COMPLEX [Concomitant]
  14. ZINC (ZINC) [Concomitant]

REACTIONS (4)
  - Retching [None]
  - Somnolence [None]
  - Diarrhoea [None]
  - Decreased appetite [None]
